FAERS Safety Report 5369271-1 (Version None)
Quarter: 2007Q2

REPORT INFORMATION
  Report Type: 
  Country: None (occurrence: None)
  Receive Date: 20070625
  Receipt Date: 20070301
  Transmission Date: 20071010
  Serious: No
  Sender: FDA-Public Use
  Company Number: US-ASTRAZENECA-2007UW03933

PATIENT
  Age: 60 Year
  Sex: Female
  Weight: 55.8 kg

DRUGS (2)
  1. CRESTOR [Suspect]
     Route: 048
  2. UNSPECIFIED MEDICATIONS [Concomitant]

REACTIONS (2)
  - MYALGIA [None]
  - NEURALGIA [None]
